FAERS Safety Report 4318095-2 (Version None)
Quarter: 2004Q1

REPORT INFORMATION
  Report Type: 
  Country: None (occurrence: None)
  Receive Date: 20040317
  Receipt Date: 20040308
  Transmission Date: 20041129
  Serious: Yes (Hospitalization)
  Sender: FDA-Public Use
  Company Number: WAES 0403DEU00046

PATIENT
  Age: 78 Year
  Sex: Female
  Weight: 62 kg

DRUGS (9)
  1. AMLODIPINE BESYLATE [Concomitant]
     Indication: HYPERTENSION
     Route: 048
     Dates: start: 20000101
  2. AZATHIOPRINE [Suspect]
     Indication: RHEUMATOID ARTHRITIS
     Route: 048
     Dates: start: 20020101
  3. BUPRENORPHINE HYDROCHLORIDE [Suspect]
     Indication: PAIN
     Route: 061
     Dates: start: 20031119, end: 20031124
  4. PHENPROCOUMON [Suspect]
     Indication: ATRIAL FIBRILLATION
     Route: 048
     Dates: start: 20020101, end: 20031121
  5. PHENPROCOUMON [Suspect]
     Indication: VENOUS THROMBOSIS LIMB
     Route: 048
     Dates: start: 20020101, end: 20031121
  6. PREDNISOLONE [Suspect]
     Indication: RHEUMATOID ARTHRITIS
     Route: 048
     Dates: start: 20020101
  7. VIOXX [Suspect]
     Indication: RHEUMATOID ARTHRITIS
     Route: 048
     Dates: start: 20020101, end: 20031122
  8. TORSEMIDE [Concomitant]
     Indication: RENAL FAILURE CHRONIC
     Route: 048
     Dates: start: 20010101
  9. XIPAMIDE [Concomitant]
     Indication: RENAL FAILURE CHRONIC
     Route: 048
     Dates: start: 20010101

REACTIONS (5)
  - DRUG INTERACTION [None]
  - GASTRITIS EROSIVE [None]
  - HELICOBACTER INFECTION [None]
  - NAUSEA [None]
  - UPPER GASTROINTESTINAL HAEMORRHAGE [None]
